FAERS Safety Report 9197678 (Version 1)
Quarter: 2013Q1

REPORT INFORMATION
  Report Type: Spontaneous
  Country: US (occurrence: US)
  Receive Date: 20130328
  Receipt Date: 20130328
  Transmission Date: 20140127
  Serious: Yes (Hospitalization)
  Sender: FDA-Public Use
  Company Number: US-BAYER-2013-037393

PATIENT
  Age: 32 Year
  Sex: Female

DRUGS (9)
  1. YAZ [Suspect]
  2. YASMIN [Suspect]
  3. OCELLA [Suspect]
  4. ALBUTEROL INHALER [Concomitant]
     Dosage: 2 PUFF(S), EVERY 4 HOURS AS NEEDED
  5. AVELOX [Concomitant]
     Dosage: 400 MG, DAILY
  6. HYDROCODONE [Concomitant]
     Dosage: EVERY 4 HOURS AS NEEDED
  7. NAPROSYN [Concomitant]
     Dosage: 500 MG, UNK
  8. VICOPROFEN [Concomitant]
  9. ANTIBIOTICS [Concomitant]
     Indication: PNEUMONIA

REACTIONS (1)
  - Pulmonary embolism [None]
